FAERS Safety Report 25439428 (Version 1)
Quarter: 2025Q2

REPORT INFORMATION
  Report Type: Spontaneous
  Country: US (occurrence: None)
  Receive Date: 20250614
  Receipt Date: 20250614
  Transmission Date: 20250716
  Serious: No
  Sender: FDA-CTU
  Company Number: None

PATIENT
  Age: 29 Year
  Sex: Female
  Weight: 122.85 kg

DRUGS (2)
  1. RHOFADE [Suspect]
     Active Substance: OXYMETAZOLINE HYDROCHLORIDE
     Indication: Rosacea
     Dosage: FREQUENCY : DAILY;?
     Route: 061
     Dates: start: 20250613, end: 20250613
  2. ZEPBOUND [Concomitant]
     Active Substance: TIRZEPATIDE

REACTIONS (4)
  - Skin burning sensation [None]
  - Application site pain [None]
  - Condition aggravated [None]
  - Skin disorder [None]

NARRATIVE: CASE EVENT DATE: 20250613
